FAERS Safety Report 4474453-7 (Version None)
Quarter: 2004Q4

REPORT INFORMATION
  Report Type: 
  Country: None (occurrence: None)
  Receive Date: 20041012
  Receipt Date: 20040929
  Transmission Date: 20050328
  Serious: Yes (Other)
  Sender: FDA-Public Use
  Company Number: HQWYE642327AUG04

PATIENT
  Age: 19 Year
  Sex: Male

DRUGS (8)
  1. RAPAMUNE [Suspect]
     Indication: IMMUNOSUPPRESSION
     Dosage: 2 MG 1X PER 1 DAY; ORAL
     Route: 048
     Dates: start: 20020326
  2. CYCLOSPORINE [Suspect]
     Dates: end: 20040601
  3. CYCLOSPORINE [Suspect]
     Dates: start: 20040601, end: 20040809
  4. HYDROCHLOROTHIAZID (HYDROCHLOROTHIAZIDE) [Concomitant]
  5. AMLODIPINE [Concomitant]
  6. RANITIDINE [Concomitant]
  7. LIPITOR [Concomitant]
  8. PREDNISONE [Concomitant]

REACTIONS (5)
  - CONDITION AGGRAVATED [None]
  - DISEASE RECURRENCE [None]
  - GLOMERULONEPHRITIS FOCAL [None]
  - KIDNEY TRANSPLANT REJECTION [None]
  - PROTEINURIA [None]
